FAERS Safety Report 7423555-1 (Version None)
Quarter: 2011Q2

REPORT INFORMATION
  Report Type: 
  Country: None (occurrence: None)
  Receive Date: 20110419
  Receipt Date: 20110224
  Transmission Date: 20111010
  Serious: Yes (Hospitalization, Other)
  Sender: FDA-Public Use
  Company Number: US-BAYER-201025970NA

PATIENT
  Age: 28 Year
  Sex: Female
  Weight: 60 kg

DRUGS (13)
  1. NAPROXEN (ALEVE) [Concomitant]
  2. ADVIL LIQUI-GELS [Concomitant]
  3. POTASSIUM [Concomitant]
     Dates: start: 20070101
  4. ALBUTEROL [Concomitant]
     Indication: ASTHMA
  5. ZYRTEC [Concomitant]
     Indication: MULTIPLE ALLERGIES
  6. CIPROFLOXACIN [Concomitant]
     Dates: start: 20090101
  7. SENSORCAINE [Concomitant]
     Dosage: UNK
     Dates: start: 20090630
  8. LEVAQUIN [Concomitant]
     Dosage: 500 MG, UNK
     Route: 042
     Dates: start: 20090630
  9. CIPRO [Concomitant]
     Dosage: 500 MG, BID
     Dates: start: 20090630
  10. LORTAB [Concomitant]
     Indication: PAIN
     Dosage: UNK UNK, PRN
     Dates: start: 20090630
  11. NAPROSYN [Concomitant]
  12. YAZ [Suspect]
     Indication: CONTRACEPTION
     Route: 048
     Dates: start: 20081201, end: 20090601
  13. MOTRIN [Concomitant]

REACTIONS (7)
  - CHOLECYSTITIS CHRONIC [None]
  - ABDOMINAL TENDERNESS [None]
  - ABDOMINAL PAIN UPPER [None]
  - CHOLELITHIASIS [None]
  - ABDOMINAL PAIN [None]
  - NAUSEA [None]
  - CHEST DISCOMFORT [None]
